FAERS Safety Report 24799865 (Version 1)
Quarter: 2025Q1

REPORT INFORMATION
  Report Type: Spontaneous
  Country: ES (occurrence: A1)
  Receive Date: 20250102
  Receipt Date: 20250102
  Transmission Date: 20250408
  Serious: Yes (Other)
  Sender: BRECKENRIDGE PHARMACEUTICAL, INC.
  Company Number: A1-Breckenridge Pharmaceutical, Inc.-2168203

PATIENT

DRUGS (1)
  1. DULOXETINE [Suspect]
     Active Substance: DULOXETINE

REACTIONS (2)
  - Cerebrovascular accident [Unknown]
  - Cardiovascular symptom [Unknown]
